FAERS Safety Report 18513117 (Version 1)
Quarter: 2020Q4

REPORT INFORMATION
  Report Type: Spontaneous
  Country: US (occurrence: US)
  Receive Date: 20201117
  Receipt Date: 20201117
  Transmission Date: 20210114
  Serious: No
  Sender: FDA-Public Use
  Company Number: US-BRISTOL-MYERS SQUIBB COMPANY-BMS-2020-097090

PATIENT
  Sex: Female
  Weight: 69 kg

DRUGS (2)
  1. OPDIVO [Suspect]
     Active Substance: NIVOLUMAB
     Indication: ANAL CANCER
     Dosage: 214 MILLIGRAM, Q2WK
     Route: 065
     Dates: start: 2016, end: 202008
  2. YERVOY [Suspect]
     Active Substance: IPILIMUMAB
     Indication: ANAL CANCER
     Dosage: UNK
     Route: 065

REACTIONS (2)
  - Off label use [Unknown]
  - Adverse event [Unknown]
